FAERS Safety Report 6987127-5 (Version None)
Quarter: 2010Q3

REPORT INFORMATION
  Report Type: 
  Country: None (occurrence: None)
  Receive Date: 20100916
  Receipt Date: 20100908
  Transmission Date: 20110219
  Serious: Yes (Other)
  Sender: FDA-Public Use
  Company Number: US-JNJFOC-20100904182

PATIENT
  Sex: Female

DRUGS (2)
  1. ORTHO TRI-CYCLEN LO [Suspect]
     Indication: CONTRACEPTION
     Route: 048
  2. ADVIL LIQUI-GELS [Concomitant]
     Indication: PAIN
     Route: 048

REACTIONS (1)
  - COELIAC DISEASE [None]
